FAERS Safety Report 13950008 (Version 1)
Quarter: 2017Q3

REPORT INFORMATION
  Report Type: Spontaneous
  Country: JP (occurrence: JP)
  Receive Date: 20170908
  Receipt Date: 20170908
  Transmission Date: 20171128
  Serious: Yes (Other)
  Sender: FDA-Public Use
  Company Number: PHJP2017JP027194

PATIENT
  Sex: Female

DRUGS (2)
  1. DIAMOX SEQUELS [Suspect]
     Active Substance: ACETAZOLAMIDE
     Indication: PRODUCT USED FOR UNKNOWN INDICATION
     Dosage: UNK
     Route: 065
  2. DUOTRAV COMBINATION OPHTHALMIC SOLUTION [Suspect]
     Active Substance: TIMOLOL MALEATE\TRAVOPROST
     Indication: PRODUCT USED FOR UNKNOWN INDICATION
     Dosage: UNK
     Route: 047

REACTIONS (4)
  - Lid sulcus deepened [Recovering/Resolving]
  - Dyspnoea [Unknown]
  - Blepharal pigmentation [Recovering/Resolving]
  - Intraocular pressure increased [Unknown]
